FAERS Safety Report 7965832-1 (Version None)
Quarter: 2011Q4

REPORT INFORMATION
  Report Type: 
  Country: None (occurrence: None)
  Receive Date: 20111208
  Receipt Date: 20111201
  Transmission Date: 20120403
  Serious: Yes (Hospitalization)
  Sender: FDA-Public Use
  Company Number: JP-B.I. PHARMACEUTICALS,INC./RIDGEFIELD-2011-BP-25732NB

PATIENT
  Sex: Male
  Weight: 57 kg

DRUGS (5)
  1. BESACOLIN [Concomitant]
     Dosage: 30 MG
     Route: 048
     Dates: end: 20110303
  2. TELMISARTAN AND HYDROCHLOROTHIAZIDE [Suspect]
     Indication: HYPERTENSION
     Dosage: 1DF, TELMISARTAN40MG+HYDROCHLOROTHIAZIDE12.5MG
     Route: 048
     Dates: start: 20100622, end: 20110303
  3. KREMEZIN [Concomitant]
     Dosage: 6 G
     Route: 048
     Dates: end: 20110303
  4. TREBIANOM [Concomitant]
     Dosage: 25 MG
     Route: 048
     Dates: end: 20110303
  5. URIEF [Concomitant]
     Dosage: 8 MG
     Route: 048
     Dates: end: 20110303

REACTIONS (3)
  - HYPERURICAEMIA [None]
  - BENIGN PROSTATIC HYPERPLASIA [None]
  - RHINITIS ALLERGIC [None]
